FAERS Safety Report 8540627-9 (Version None)
Quarter: 2012Q2

REPORT INFORMATION
  Report Type: 
  Country: None (occurrence: None)
  Receive Date: 20120416
  Receipt Date: 20080729
  Transmission Date: 20120825
  Serious: Yes (Other)
  Sender: FDA-Public Use
  Company Number: PHEH2008US04864

PATIENT
  Sex: Female
  Weight: 63 kg

DRUGS (4)
  1. TENORETIC 100 [Suspect]
  2. DIOVAN [Suspect]
     Dosage: 325 MG
  3. NORVASC [Suspect]
     Dosage: 10 MG
  4. MICRO-K [Suspect]
     Dosage: 20 MEQ

REACTIONS (2)
  - BLOOD PRESSURE INADEQUATELY CONTROLLED [None]
  - RENAL FAILURE [None]
